FAERS Safety Report 23116543 (Version 1)
Quarter: 2023Q4

REPORT INFORMATION
  Report Type: Spontaneous
  Country: US (occurrence: None)
  Receive Date: 20231026
  Receipt Date: 20231026
  Transmission Date: 20240109
  Serious: Yes (Death)
  Sender: FDA-Public Use
  Company Number: None

PATIENT
  Age: 73 Year
  Sex: Female

DRUGS (17)
  1. OFEV [Suspect]
     Active Substance: NINTEDANIB
     Indication: Interstitial lung disease
     Dosage: FREQUENCY : TWICE A DAY;?
     Route: 048
     Dates: start: 20220615, end: 20231019
  2. XARELTO [Concomitant]
  3. PANTOPRAZOLE [Concomitant]
     Active Substance: PANTOPRAZOLE
  4. IPRATROPIUM INHL SOLN [Concomitant]
  5. PROPRANOLOL [Concomitant]
     Active Substance: PROPRANOLOL HYDROCHLORIDE
  6. ALBUTEROL INHL NEB SOLN [Concomitant]
  7. QUETIAPINE [Concomitant]
     Active Substance: QUETIAPINE
  8. MIRABEGRON [Concomitant]
  9. FUROSEMIDE [Concomitant]
  10. ALBUTEROL HFA [Concomitant]
  11. CITALOPRAM [Concomitant]
  12. LOPERAMIDE [Concomitant]
  13. BENZONATATE [Concomitant]
  14. MIRTAZAPINE [Concomitant]
  15. TUMS [Concomitant]
  16. OXYGEN INTRANASAL [Concomitant]
  17. MVI-MINERALS-IRON [Concomitant]

REACTIONS (7)
  - Mental status changes [None]
  - Acute respiratory failure [None]
  - Pulseless electrical activity [None]
  - Cardiac arrest [None]
  - Hypercapnia [None]
  - Interstitial lung disease [None]
  - Disease progression [None]

NARRATIVE: CASE EVENT DATE: 20231011
